FAERS Safety Report 8660643 (Version 3)
Quarter: 2013Q4

REPORT INFORMATION
  Report Type: Spontaneous
  Country: US (occurrence: US)
  Receive Date: 20120711
  Receipt Date: 20131101
  Transmission Date: 20140711
  Serious: No
  Sender: FDA-Public Use
  Company Number: US-009507513-1207USA00139

PATIENT
  Age: 65 Year
  Sex: Male

DRUGS (1)
  1. FOSAMAX [Suspect]
     Indication: OSTEOPOROSIS
     Dosage: 70 MG, QW
     Route: 048
     Dates: start: 20120127, end: 20120518

REACTIONS (10)
  - Drug intolerance [Unknown]
  - Muscle twitching [Unknown]
  - Headache [Unknown]
  - Back pain [Unknown]
  - Chest pain [Unknown]
  - Pain in extremity [Unknown]
  - Arthralgia [Unknown]
  - Myalgia [Unknown]
  - Dyspepsia [Unknown]
  - Muscle spasms [Unknown]
